FAERS Safety Report 9146738 (Version 1)
Quarter: 2013Q1

REPORT INFORMATION
  Report Type: Report from Study
  Country: BR (occurrence: BR)
  Receive Date: 20130307
  Receipt Date: 20130307
  Transmission Date: 20140127
  Serious: Yes (Other)
  Sender: FDA-Public Use
  Company Number: BR-ROCHE-1153935

PATIENT
  Sex: Male
  Weight: 65 kg

DRUGS (1)
  1. ACTEMRA [Suspect]
     Indication: INFLAMMATION
     Dosage: 3 TIMES INFUSION
     Route: 065

REACTIONS (5)
  - Hypersensitivity [Unknown]
  - Dyspnoea [Unknown]
  - Aphonia [Unknown]
  - Swelling [Unknown]
  - Burning sensation [Unknown]
